FAERS Safety Report 15192492 (Version 2)
Quarter: 2018Q3

REPORT INFORMATION
  Report Type: Spontaneous
  Country: ES (occurrence: ES)
  Receive Date: 20180725
  Receipt Date: 20180901
  Transmission Date: 20181010
  Serious: Yes (Hospitalization)
  Sender: FDA-Public Use
  Company Number: PHHY2018ES051582

PATIENT
  Age: 77 Year
  Sex: Female

DRUGS (3)
  1. PIPERACILLIN AND TAZOBACTAM [Suspect]
     Active Substance: PIPERACILLIN SODIUM\TAZOBACTAM SODIUM
     Indication: PRODUCT USED FOR UNKNOWN INDICATION
     Dosage: 3 G, QD
     Route: 065
     Dates: start: 20161024, end: 20161110
  2. MEROPENEM. [Suspect]
     Active Substance: MEROPENEM
     Indication: POSTOPERATIVE WOUND INFECTION
     Dosage: 2 G, TID
     Route: 065
     Dates: start: 20161103, end: 20161111
  3. AMOXICILINA/ CLAVULONICO [Concomitant]
     Indication: POSTOPERATIVE WOUND INFECTION
     Dosage: 1 G, TID
     Route: 042
     Dates: start: 20160913, end: 20160928

REACTIONS (1)
  - Drug reaction with eosinophilia and systemic symptoms [Recovered/Resolved]

NARRATIVE: CASE EVENT DATE: 20161111
